FAERS Safety Report 8612064-X (Version None)
Quarter: 2012Q3

REPORT INFORMATION
  Report Type: 
  Country: None (occurrence: None)
  Receive Date: 20120822
  Receipt Date: 20120301
  Transmission Date: 20120928
  Serious: No
  Sender: FDA-Public Use
  Company Number: US-ASTRAZENECA-2011SE11790

PATIENT
  Age: 64 Year
  Sex: Female

DRUGS (2)
  1. TOPROL-XL [Suspect]
     Route: 048
  2. SYMBICORT [Suspect]
     Dosage: 1604.5 MCG, UNKNOWN
     Route: 055

REACTIONS (2)
  - RESPIRATORY DISORDER [None]
  - HYPERTENSION [None]
